FAERS Safety Report 8641158 (Version 5)
Quarter: 2012Q4

REPORT INFORMATION
  Report Type: Report from Study
  Country: US (occurrence: US)
  Receive Date: 20120628
  Receipt Date: 20120913
  Transmission Date: 20130627
  Serious: Yes (Hospitalization)
  Sender: FDA-Public Use
  Company Number: US-JNJFOC-20120205063

PATIENT
  Age: 14 Year
  Sex: Female
  Weight: 66.6 kg

DRUGS (13)
  1. REMICADE [Suspect]
     Indication: COLITIS ULCERATIVE
     Route: 042
     Dates: start: 20120118
  2. REMICADE [Suspect]
     Indication: COLITIS ULCERATIVE
     Route: 042
  3. 6-MERCAPTOPURINE [Concomitant]
  4. 5-ASA [Concomitant]
  5. PREDNISONE [Concomitant]
  6. ANTIBIOTICS [Concomitant]
  7. OMEPRAZOLE [Concomitant]
  8. ACETAMINOPHEN [Concomitant]
  9. OXYCODONE [Concomitant]
  10. MULTIVITAMINS [Concomitant]
  11. CHOLECALCIFEROL [Concomitant]
  12. FERROUS SULFATE [Concomitant]
  13. LOPERAMIDE [Concomitant]

REACTIONS (4)
  - Colitis ulcerative [Recovered/Resolved]
  - Pancreatitis [Recovered/Resolved]
  - Small intestinal obstruction [Recovered/Resolved with Sequelae]
  - Abdominal abscess [Recovered/Resolved]
